FAERS Safety Report 8630739 (Version 2)
Quarter: 2012Q4

REPORT INFORMATION
  Report Type: 
  Country: US (occurrence: US)
  Receive Date: 20120622
  Receipt Date: 20120918
  Transmission Date: 20130627
  Serious: Yes (Other)
  Sender: FDA-Public Use
  Company Number: US-GLAXOSMITHKLINE-A0981307A

PATIENT
  Age: 46 Year
  Sex: Female
  Weight: 74.1 kg

DRUGS (7)
  1. VALTREX [Suspect]
     Indication: GENITAL HERPES
     Dosage: 500MG Per day
     Route: 048
     Dates: start: 200703
  2. UNSPECIFIED MEDICATION [Concomitant]
     Dosage: 500MG Per day
  3. FEMARA [Concomitant]
  4. FLONASE [Concomitant]
  5. PATANASE [Concomitant]
  6. MELATONIN [Concomitant]
  7. NSAIDS [Concomitant]

REACTIONS (5)
  - Liver function test abnormal [Recovered/Resolved]
  - Skin haemorrhage [Recovered/Resolved]
  - Kidney infection [Recovered/Resolved]
  - Genital herpes [Recovered/Resolved]
  - Anal fissure [Recovered/Resolved]
